FAERS Safety Report 12682623 (Version 2)
Quarter: 2016Q3

REPORT INFORMATION
  Report Type: Report from Study
  Country: US (occurrence: US)
  Receive Date: 20160825
  Receipt Date: 20160912
  Transmission Date: 20161109
  Serious: No
  Sender: FDA-Public Use
  Company Number: PHEH2016US021003

PATIENT
  Sex: Male
  Weight: 85.2 kg

DRUGS (1)
  1. GILENYA [Suspect]
     Active Substance: FINGOLIMOD HYDROCHLORIDE
     Indication: MULTIPLE SCLEROSIS
     Dosage: 0.5 MG, QD
     Route: 048

REACTIONS (5)
  - Burning sensation [Unknown]
  - Scoliosis [Unknown]
  - Swelling face [Unknown]
  - Renal pain [Unknown]
  - Drug hypersensitivity [Unknown]
